FAERS Safety Report 17510304 (Version 1)
Quarter: 2020Q1

REPORT INFORMATION
  Report Type: Spontaneous
  Country: JP (occurrence: JP)
  Receive Date: 20200306
  Receipt Date: 20200306
  Transmission Date: 20200409
  Serious: Yes (Other)
  Sender: FDA-Public Use
  Company Number: JP-ASTRAZENECA-2020SE18892

PATIENT
  Age: 72 Year
  Sex: Male

DRUGS (2)
  1. TAGRISSO [Suspect]
     Active Substance: OSIMERTINIB
     Indication: NON-SMALL CELL LUNG CANCER
     Route: 048
     Dates: start: 20191129, end: 20200219
  2. TAGRISSO [Suspect]
     Active Substance: OSIMERTINIB
     Indication: NON-SMALL CELL LUNG CANCER
     Route: 048
     Dates: start: 20200221

REACTIONS (7)
  - Deafness [Unknown]
  - Trismus [Unknown]
  - Otitis media [Unknown]
  - Dysphagia [Unknown]
  - Facial paralysis [Unknown]
  - Stomatitis [Recovering/Resolving]
  - Eyelid ptosis [Unknown]

NARRATIVE: CASE EVENT DATE: 20200218
